FAERS Safety Report 9977016 (Version 1)
Quarter: 2014Q1

REPORT INFORMATION
  Report Type: Report from Study
  Country: US (occurrence: US)
  Receive Date: 20140306
  Receipt Date: 20140306
  Transmission Date: 20141002
  Serious: No
  Sender: FDA-Public Use
  Company Number: US-ABBVIE-13P-163-1167808-00

PATIENT
  Age: 72 Year
  Sex: Female
  Weight: 66.74 kg

DRUGS (22)
  1. HUMIRA [Suspect]
     Indication: COLITIS ULCERATIVE
     Dates: start: 20130918, end: 20130918
  2. HUMIRA [Suspect]
     Dosage: INTIAL DOSE
     Dates: start: 20130920, end: 20130920
  3. HUMIRA [Suspect]
     Dates: start: 20131004
  4. PLAQUENIL [Concomitant]
     Indication: SYSTEMIC LUPUS ERYTHEMATOSUS
  5. PLAQUENIL [Concomitant]
     Indication: COLITIS ULCERATIVE
  6. SYNTHROID [Concomitant]
     Indication: HYPOTHYROIDISM
  7. BLOOD PRESSURE MEDICATION [Concomitant]
     Indication: HYPERTENSION
  8. POTASSIUM [Concomitant]
     Indication: MINERAL SUPPLEMENTATION
  9. TRAMADOL [Concomitant]
     Indication: PAIN
     Dosage: 2 QID
  10. VITAMIN E [Concomitant]
     Indication: NEUROPATHY PERIPHERAL
  11. VITAMIN D [Concomitant]
     Indication: VITAMIN D DEFICIENCY
  12. ATIVAN [Concomitant]
     Indication: SLEEP DISORDER THERAPY
  13. HCTZ [Concomitant]
     Indication: HYPERTENSION
  14. VITAMIN B6 [Concomitant]
     Indication: PRODUCT USED FOR UNKNOWN INDICATION
  15. CALTRATE [Concomitant]
     Indication: PRODUCT USED FOR UNKNOWN INDICATION
  16. KLOR CON [Concomitant]
     Indication: PRODUCT USED FOR UNKNOWN INDICATION
  17. LIALDA [Concomitant]
     Indication: COLITIS ULCERATIVE
     Dosage: 2 EVERY AM
  18. LORAZEPAM [Concomitant]
     Indication: INSOMNIA
     Dosage: AT BED TIME
  19. LOMOTIL [Concomitant]
     Indication: DIARRHOEA
     Dosage: PRN
  20. FLUNISOLIDE [Concomitant]
     Indication: PRODUCT USED FOR UNKNOWN INDICATION
     Dosage: PRN
  21. HYDROXYZINE [Concomitant]
     Indication: PRODUCT USED FOR UNKNOWN INDICATION
     Dosage: PRN
  22. DESOXIMETASONE [Concomitant]
     Indication: RASH

REACTIONS (2)
  - Fatigue [Not Recovered/Not Resolved]
  - Back pain [Not Recovered/Not Resolved]
